FAERS Safety Report 5337803-5 (Version None)
Quarter: 2007Q2

REPORT INFORMATION
  Report Type: 
  Country: None (occurrence: None)
  Receive Date: 20070530
  Receipt Date: 20070521
  Transmission Date: 20071010
  Serious: Yes (Death)
  Sender: FDA-Public Use
  Company Number: IL-NOVOPROD-263818

PATIENT
  Age: 3 Month
  Sex: Male

DRUGS (5)
  1. NOVOSEVEN [Suspect]
     Indication: HAEMORRHAGE
     Dosage: .4 MG, TID
     Dates: start: 20070519
  2. FRESH FROZEN PLASMA [Concomitant]
  3. CRYOPRECIPITATES [Concomitant]
  4. PLATELETS [Concomitant]
  5. VITAMIN K                          /00032401/ [Concomitant]

REACTIONS (1)
  - DRUG INEFFECTIVE [None]
